FAERS Safety Report 8611923-1 (Version None)
Quarter: 2012Q3

REPORT INFORMATION
  Report Type: 
  Country: None (occurrence: None)
  Receive Date: 20120809
  Receipt Date: 20120726
  Transmission Date: 20120928
  Serious: Yes (Hospitalization)
  Sender: FDA-Public Use
  Company Number: GPVG-ADR-2012-50

PATIENT
  Age: 52 Year
  Sex: Female

DRUGS (2)
  1. ABACAVIR SULFATE/LAMIVUDINE [Concomitant]
  2. NEVIRAPINE [Suspect]
     Indication: HIV INFECTION
     Dosage: 200 MG, BID, ORAL
     Route: 048
     Dates: start: 20120424, end: 20120525

REACTIONS (9)
  - RASH GENERALISED [None]
  - LIVER FUNCTION TEST ABNORMAL [None]
  - ARTHRALGIA [None]
  - PYREXIA [None]
  - HYPERSENSITIVITY [None]
  - MALAISE [None]
  - RENAL FAILURE ACUTE [None]
  - ALANINE AMINOTRANSFERASE INCREASED [None]
  - MYALGIA [None]
